FAERS Safety Report 16637252 (Version 1)
Quarter: 2019Q3

REPORT INFORMATION
  Report Type: Report from Study
  Country: None (occurrence: US)
  Receive Date: 20190726
  Receipt Date: 20190726
  Transmission Date: 20191004
  Serious: Yes (Hospitalization, Other)
  Sender: FDA-Public Use
  Company Number: US-ABBVIE-19K-163-2817699-00

PATIENT
  Sex: Female
  Weight: 90.8 kg

DRUGS (4)
  1. HUMIRA [Suspect]
     Active Substance: ADALIMUMAB
     Dosage: CITRATE FREE, (START DATE TEXT-A WEEK AFTER MAY 17 2019)
     Route: 058
     Dates: start: 201905
  2. LYRICA [Concomitant]
     Active Substance: PREGABALIN
     Indication: SWELLING
  3. HUMIRA [Suspect]
     Active Substance: ADALIMUMAB
     Indication: COLITIS ULCERATIVE
     Dosage: CITRATE FREE (A WEEK BEFORE MAY 17 2019)
     Route: 058
     Dates: end: 201905
  4. LYRICA [Concomitant]
     Active Substance: PREGABALIN
     Indication: ARTHRITIS

REACTIONS (2)
  - Mobility decreased [Recovered/Resolved]
  - Musculoskeletal pain [Recovered/Resolved]

NARRATIVE: CASE EVENT DATE: 2017
